FAERS Safety Report 8723167 (Version 2)
Quarter: 2013Q4

REPORT INFORMATION
  Report Type: Spontaneous
  Country: US (occurrence: US)
  Receive Date: 20120814
  Receipt Date: 20131101
  Transmission Date: 20140711
  Serious: No
  Sender: FDA-Public Use
  Company Number: US-009507513-1208USA003910

PATIENT
  Sex: Male

DRUGS (1)
  1. A AND D FIRST AID [Suspect]
     Indication: DERMATITIS DIAPER
     Dosage: UNK, UNKNOWN
     Route: 061
     Dates: start: 20120520

REACTIONS (1)
  - Drug ineffective [Unknown]
